FAERS Safety Report 5354753-9 (Version None)
Quarter: 2007Q2

REPORT INFORMATION
  Report Type: 
  Country: None (occurrence: None)
  Receive Date: 20070611
  Receipt Date: 20070518
  Transmission Date: 20071010
  Serious: Yes (Death, Hospitalization)
  Sender: FDA-Public Use
  Company Number: 2007BI011456

PATIENT
  Age: 68 Year
  Sex: Female
  Weight: 80 kg

DRUGS (3)
  1. AVONEX [Suspect]
     Indication: MULTIPLE SCLEROSIS
     Dosage: QW; IM
     Route: 030
     Dates: end: 20070111
  2. CORTICOSTEROID [Concomitant]
  3. CALMATIVE [Concomitant]

REACTIONS (8)
  - CARDIOVASCULAR DISORDER [None]
  - CEREBROVASCULAR ACCIDENT [None]
  - ISCHAEMIA [None]
  - MULTI-ORGAN FAILURE [None]
  - MULTIPLE SCLEROSIS [None]
  - PNEUMONIA BACTERIAL [None]
  - SCAR [None]
  - URINARY TRACT INFECTION [None]
